FAERS Safety Report 17574088 (Version 1)
Quarter: 2020Q1

REPORT INFORMATION
  Report Type: Spontaneous
  Country: CN (occurrence: CN)
  Receive Date: 20200323
  Receipt Date: 20200323
  Transmission Date: 20200409
  Serious: Yes (Life-Threatening, Hospitalization, Other)
  Sender: FDA-Public Use
  Company Number: CN-ELI_LILLY_AND_COMPANY-CN202003008571

PATIENT
  Age: 30 Year
  Sex: Female
  Weight: 46 kg

DRUGS (2)
  1. HUMALOG [Suspect]
     Active Substance: INSULIN LISPRO
     Indication: NEPHROPATHY
     Dosage: 12.6 U, DAILY
     Route: 058
     Dates: start: 20200103, end: 20200306
  2. HUMALOG [Suspect]
     Active Substance: INSULIN LISPRO
     Indication: DIABETES MELLITUS

REACTIONS (6)
  - Decreased appetite [Unknown]
  - Diabetic nephropathy [Unknown]
  - Altered state of consciousness [Recovering/Resolving]
  - Blood glucose increased [Unknown]
  - Hypoglycaemic coma [Recovering/Resolving]
  - End stage renal disease [Unknown]

NARRATIVE: CASE EVENT DATE: 20200306
